FAERS Safety Report 5787411-7 (Version None)
Quarter: 2008Q2

REPORT INFORMATION
  Report Type: 
  Country: None (occurrence: None)
  Receive Date: 20080623
  Receipt Date: 20080623
  Transmission Date: 20081010
  Serious: Yes (Hospitalization)
  Sender: FDA-Public Use
  Company Number: None

PATIENT
  Age: 33 Year
  Sex: Male
  Weight: 87.6 kg

DRUGS (10)
  1. VANCOMYCIN [Suspect]
     Indication: FEBRILE NEUTROPENIA
     Dosage: 1250 MG Q12H IV BOLUS
     Route: 040
     Dates: start: 20071203, end: 20071207
  2. VANCOMYCIN [Suspect]
     Indication: STAPHYLOCOCCAL BACTERAEMIA
     Dosage: 1250 MG Q12H IV BOLUS
     Route: 040
     Dates: start: 20071203, end: 20071207
  3. ZOSYN [Suspect]
     Indication: SINUSITIS
     Dosage: 4.5 GM Q6H IV BOLUS
     Route: 040
     Dates: start: 20071203, end: 20071211
  4. ACYCLOVIR SODIUM [Concomitant]
  5. ALLOPURINOL [Concomitant]
  6. FUROSEMIDE [Concomitant]
  7. HYDROXYUREA [Concomitant]
  8. METRONIDAZOLE HCL [Concomitant]
  9. MICAFUNGIN [Concomitant]
  10. PANTOPRAZOLE SODIUM [Concomitant]

REACTIONS (1)
  - NEPHROPATHY TOXIC [None]
